FAERS Safety Report 12929942 (Version 1)
Quarter: 2016Q4

REPORT INFORMATION
  Report Type: Spontaneous
  Country: US (occurrence: US)
  Receive Date: 20161110
  Receipt Date: 20161110
  Transmission Date: 20170207
  Serious: Yes (Hospitalization, Disabling)
  Sender: FDA-Public Use
  Company Number: US-PFIZER INC-2016518631

PATIENT
  Age: 65 Year
  Sex: Female
  Weight: 86 kg

DRUGS (4)
  1. WELLBUTRIN XL [Concomitant]
     Active Substance: BUPROPION HYDROCHLORIDE
     Indication: DEPRESSION
     Dosage: 300 MG, UNK
  2. TOVIAZ [Concomitant]
     Active Substance: FESOTERODINE FUMARATE
     Indication: URINARY INCONTINENCE
     Dosage: 8 MG, UNK
  3. TOPROL XL [Concomitant]
     Active Substance: METOPROLOL SUCCINATE
     Indication: HYPERTENSION
     Dosage: 25 MG, UNK
     Dates: start: 201601
  4. PRISTIQ EXTENDED-RELEASE [Suspect]
     Active Substance: DESVENLAFAXINE SUCCINATE
     Indication: DEPRESSION
     Dosage: 100 MG, 1X/DAY
     Route: 048
     Dates: start: 2016

REACTIONS (3)
  - Device failure [Unknown]
  - Back disorder [Unknown]
  - Cerebrovascular accident [Unknown]

NARRATIVE: CASE EVENT DATE: 201601
